FAERS Safety Report 5269569-1 (Version None)
Quarter: 2007Q1

REPORT INFORMATION
  Report Type: 
  Country: None (occurrence: None)
  Receive Date: 20070320
  Receipt Date: 20070306
  Transmission Date: 20070707
  Serious: Yes (Life-Threatening)
  Sender: FDA-Public Use
  Company Number: JP-BAYER-200710178BYL

PATIENT
  Sex: Female

DRUGS (1)
  1. ADALAT [Suspect]
     Indication: COMPLETED SUICIDE
     Route: 048
     Dates: start: 20070306

REACTIONS (1)
  - SHOCK [None]
